FAERS Safety Report 8586811 (Version 4)
Quarter: 2012Q4

REPORT INFORMATION
  Report Type: 
  Country: JP (occurrence: JP)
  Receive Date: 20120530
  Receipt Date: 20121010
  Transmission Date: 20130627
  Serious: Yes (Other)
  Sender: FDA-Public Use
  Company Number: JP-JNJFOC-20120519431

PATIENT
  Age: 82 Year
  Sex: Male

DRUGS (1)
  1. TRAMCET [Suspect]
     Indication: PAIN
     Dosage: once a day
     Route: 048
     Dates: start: 201205, end: 20120523

REACTIONS (1)
  - Pulmonary fibrosis [Recovering/Resolving]
